FAERS Safety Report 10251247 (Version 1)
Quarter: 2014Q2

REPORT INFORMATION
  Report Type: Spontaneous
  Country: US (occurrence: US)
  Receive Date: 20140621
  Receipt Date: 20140621
  Transmission Date: 20141212
  Serious: Yes (Hospitalization, Other)
  Sender: FDA-Public Use
  Company Number: US-GILEAD-2014-0106172

PATIENT
  Sex: Female

DRUGS (2)
  1. LETAIRIS [Suspect]
     Indication: PRODUCT USED FOR UNKNOWN INDICATION
     Dosage: 5 MG, QD
     Route: 065
     Dates: start: 20120104
  2. COUMADIN                           /00014802/ [Concomitant]

REACTIONS (6)
  - Fall [Unknown]
  - Laceration [Unknown]
  - Kidney infection [Unknown]
  - Diabetes mellitus [Unknown]
  - Malaise [Unknown]
  - Cystitis [Unknown]
